FAERS Safety Report 14316455 (Version 1)
Quarter: 2017Q4

REPORT INFORMATION
  Report Type: Report from Study
  Country: US (occurrence: US)
  Receive Date: 20171222
  Receipt Date: 20171222
  Transmission Date: 20180321
  Serious: Yes (Hospitalization, Other)
  Sender: FDA-Public Use
  Company Number: US-VISTAPHARM, INC.-VER201712-001444

PATIENT

DRUGS (9)
  1. MORPHINE [Suspect]
     Active Substance: MORPHINE
     Indication: PROCEDURAL PAIN
     Route: 037
     Dates: start: 201406, end: 201504
  2. MORPHINE [Suspect]
     Active Substance: MORPHINE
     Route: 037
  3. OXYCODONE [Concomitant]
     Active Substance: OXYCODONE
     Route: 048
  4. DIAZEPAM. [Concomitant]
     Active Substance: DIAZEPAM
  5. DEXAMETHASONE. [Concomitant]
     Active Substance: DEXAMETHASONE
  6. DIAZEPAM. [Concomitant]
     Active Substance: DIAZEPAM
     Dosage: 0.05 MG/KG FOR THE FIRST 24 H (IV OR ORAL AS NEEDED)
  7. ONDANSETRON [Concomitant]
     Active Substance: ONDANSETRON
  8. KETOROLAC [Concomitant]
     Active Substance: KETOROLAC\KETOROLAC TROMETHAMINE
     Route: 042
  9. ACETAMINOPHEN. [Concomitant]
     Active Substance: ACETAMINOPHEN
     Route: 048

REACTIONS (1)
  - Transcranial electrical motor evoked potential monitoring abnormal [Unknown]
